FAERS Safety Report 14326494 (Version 2)
Quarter: 2018Q1

REPORT INFORMATION
  Report Type: Report from Study
  Country: JP (occurrence: JP)
  Receive Date: 20171227
  Receipt Date: 20180308
  Transmission Date: 20180509
  Serious: Yes (Death)
  Sender: FDA-Public Use
  Company Number: JP-UCBSA-2017052519

PATIENT
  Age: 88 Year
  Sex: Male

DRUGS (5)
  1. LEVETIRACETAM. [Suspect]
     Active Substance: LEVETIRACETAM
     Indication: PARTIAL SEIZURES WITH SECONDARY GENERALISATION
     Dosage: 500 MG, ONCE DAILY (QD)
     Route: 041
     Dates: start: 20160109, end: 20160110
  2. PHENOBAL [Concomitant]
     Active Substance: PHENOBARBITAL
     Indication: PARTIAL SEIZURES WITH SECONDARY GENERALISATION
     Route: 065
     Dates: start: 20160109, end: 20160109
  3. NEOPHYLLIN [Concomitant]
     Active Substance: AMINOPHYLLINE
     Indication: PRODUCT USED FOR UNKNOWN INDICATION
     Route: 065
     Dates: end: 20160110
  4. ALEVIATIN [Concomitant]
     Active Substance: PHENYTOIN SODIUM
     Indication: PARTIAL SEIZURES WITH SECONDARY GENERALISATION
     Route: 065
     Dates: start: 20160109, end: 20160109
  5. CERCINE [Concomitant]
     Active Substance: DIAZEPAM
     Indication: PARTIAL SEIZURES WITH SECONDARY GENERALISATION
     Route: 065
     Dates: start: 20160109, end: 20160109

REACTIONS (2)
  - Inappropriate schedule of drug administration [Unknown]
  - Pneumonia [Fatal]

NARRATIVE: CASE EVENT DATE: 20160109
